FAERS Safety Report 10243174 (Version 1)
Quarter: 2014Q2

REPORT INFORMATION
  Report Type: Spontaneous
  Country: US (occurrence: None)
  Receive Date: 20140616
  Receipt Date: 20140616
  Transmission Date: 20141212
  Serious: Yes (Death)
  Sender: FDA-Public Use
  Company Number: FK201402340

PATIENT
  Sex: 0

DRUGS (2)
  1. FLUDARABINE (MANUFACTURER UNKNOWN) (FLUDARABINE PHOSPHATE) (FLUDARABINE PHOSPHATE) [Suspect]
     Indication: PLASMA CELL MYELOMA
  2. MELPHALAN [Suspect]
     Indication: PLASMA CELL MYELOMA

REACTIONS (1)
  - Multi-organ failure [None]
